FAERS Safety Report 4505374-9 (Version None)
Quarter: 2005Q1

REPORT INFORMATION
  Report Type: 
  Country: None (occurrence: None)
  Receive Date: 20041015
  Receipt Date: 20040315
  Transmission Date: 20050727
  Serious: Yes (Other)
  Sender: FDA-Public Use
  Company Number: 2004018157

PATIENT
  Age: 50 Year
  Sex: Female

DRUGS (6)
  1. NEURONTIN [Suspect]
     Indication: ANXIETY
     Dosage: ORAL
     Route: 048
  2. OXCARBAZEPINE (OXCARBAZEPINE) [Suspect]
     Indication: ILL-DEFINED DISORDER
  3. CLONAZEPAM [Concomitant]
  4. RISPERIDONE [Concomitant]
  5. VALPROATE SODIUM [Concomitant]
  6. ARIPIPRAZOLE [Concomitant]

REACTIONS (3)
  - BLOOD CHOLESTEROL INCREASED [None]
  - BLOOD SODIUM DECREASED [None]
  - WEIGHT INCREASED [None]
